FAERS Safety Report 23146754 (Version 1)
Quarter: 2023Q4

REPORT INFORMATION
  Report Type: Report from Study
  Country: NL (occurrence: NL)
  Receive Date: 20231105
  Receipt Date: 20231105
  Transmission Date: 20240110
  Serious: Yes (Death, Other)
  Sender: FDA-Public Use
  Company Number: NL-CELLTRION HEALTHCARE HUNGARY KFT-2023NL019654

PATIENT
  Age: 53 Year
  Sex: Male

DRUGS (10)
  1. INFLIXIMAB [Suspect]
     Active Substance: INFLIXIMAB
     Indication: Haemophagocytic lymphohistiocytosis
     Dosage: UNK
     Route: 065
  2. ETOPOSIDE [Suspect]
     Active Substance: ETOPOSIDE
     Indication: Haemophagocytic lymphohistiocytosis
     Dosage: UNK
     Route: 065
  3. ETOPOSIDE [Suspect]
     Active Substance: ETOPOSIDE
     Indication: Autoimmune neutropenia
  4. DEXAMETHASONE [Suspect]
     Active Substance: DEXAMETHASONE
     Indication: Haemophagocytic lymphohistiocytosis
     Dosage: UNK
     Route: 065
  5. DEXAMETHASONE [Suspect]
     Active Substance: DEXAMETHASONE
     Indication: Autoimmune neutropenia
  6. CYCLOSPORINE [Suspect]
     Active Substance: CYCLOSPORINE
     Indication: Haemophagocytic lymphohistiocytosis
     Dosage: UNK
     Route: 065
  7. CYCLOSPORINE [Suspect]
     Active Substance: CYCLOSPORINE
     Indication: Autoimmune neutropenia
  8. RUXOLITINIB [Suspect]
     Active Substance: RUXOLITINIB
     Indication: Haemophagocytic lymphohistiocytosis
     Dosage: UNK
     Route: 065
  9. RUXOLITINIB [Suspect]
     Active Substance: RUXOLITINIB
     Indication: Autoimmune neutropenia
  10. RITUXIMAB [Suspect]
     Active Substance: RITUXIMAB
     Indication: Autoimmune neutropenia
     Dosage: UNK
     Route: 065

REACTIONS (3)
  - Septic shock [Fatal]
  - Intentional product use issue [Unknown]
  - Drug ineffective for unapproved indication [Unknown]
